FAERS Safety Report 24211175 (Version 1)
Quarter: 2024Q3

REPORT INFORMATION
  Report Type: Spontaneous
  Country: US (occurrence: None)
  Receive Date: 20240814
  Receipt Date: 20240814
  Transmission Date: 20241017
  Serious: Yes (Other)
  Sender: ASTRAZENECA
  Company Number: 2024A182030

PATIENT

DRUGS (1)
  1. CRESTOR [Suspect]
     Active Substance: ROSUVASTATIN CALCIUM
     Route: 048

REACTIONS (38)
  - Rhabdomyolysis [Unknown]
  - Plasma cell myeloma [Unknown]
  - Cataract [Unknown]
  - Coronary artery disease [Unknown]
  - Bundle branch block right [Unknown]
  - Hypoxia [Unknown]
  - Blood creatine phosphokinase increased [Unknown]
  - Ligament sprain [Unknown]
  - Gastrooesophageal reflux disease [Unknown]
  - Neuropathy peripheral [Unknown]
  - Pain [Unknown]
  - Seasonal allergy [Unknown]
  - Chromaturia [Unknown]
  - Pulmonary mass [Unknown]
  - Erectile dysfunction [Unknown]
  - Hypertension [Unknown]
  - Gout [Unknown]
  - Idiopathic pulmonary fibrosis [Unknown]
  - Umbilical hernia [Unknown]
  - Chronic kidney disease [Unknown]
  - Hypophosphataemia [Unknown]
  - Pain in extremity [Unknown]
  - Obstructive sleep apnoea syndrome [Unknown]
  - Glucose tolerance impaired [Unknown]
  - Insomnia [Unknown]
  - Hot flush [Unknown]
  - Scoliosis [Unknown]
  - Hypokalaemia [Unknown]
  - Headache [Unknown]
  - Back pain [Unknown]
  - Weight decreased [Unknown]
  - Osteoporosis [Unknown]
  - Hyperlipidaemia [Unknown]
  - Muscular weakness [Unknown]
  - Sciatica [Unknown]
  - Asthenia [Unknown]
  - Constipation [Unknown]
  - Diarrhoea [Unknown]
